FAERS Safety Report 7690944-X (Version None)
Quarter: 2011Q3

REPORT INFORMATION
  Report Type: 
  Country: None (occurrence: None)
  Receive Date: 20110818
  Receipt Date: 20110808
  Transmission Date: 20111222
  Serious: Yes (Life-Threatening)
  Sender: FDA-Public Use
  Company Number: DE-BAXTER-2011BH025795

PATIENT
  Age: 67 Year
  Sex: Male
  Weight: 61 kg

DRUGS (1)
  1. GAMMAGARD LIQUID [Suspect]
     Indication: NON-HODGKIN'S LYMPHOMA
     Route: 042
     Dates: start: 20110201

REACTIONS (5)
  - OBSTRUCTION [None]
  - VOMITING [None]
  - CYANOSIS [None]
  - HYPERTENSION [None]
  - CHILLS [None]
